FAERS Safety Report 4925907-8 (Version None)
Quarter: 2006Q1

REPORT INFORMATION
  Report Type: 
  Country: None (occurrence: None)
  Receive Date: 20060228
  Receipt Date: 20050413
  Transmission Date: 20060701
  Serious: No
  Sender: FDA-Public Use
  Company Number: US-GLAXOSMITHKLINE-A0553998A

PATIENT
  Age: 63 Year
  Sex: Female

DRUGS (5)
  1. LAMICTAL [Suspect]
     Indication: BIPOLAR DISORDER
     Dosage: 100MG PER DAY
     Route: 048
     Dates: start: 20050301, end: 20050101
  2. DEPAKOTE ER [Concomitant]
     Dosage: 1000MG SINGLE DOSE
     Route: 065
  3. RISPERDAL [Concomitant]
     Route: 065
  4. ATENOLOL [Concomitant]
  5. ZOLPIDEM TARTRATE [Concomitant]

REACTIONS (5)
  - BALANCE DISORDER [None]
  - CONFUSIONAL STATE [None]
  - DIZZINESS [None]
  - GAIT DISTURBANCE [None]
  - MEMORY IMPAIRMENT [None]
